FAERS Safety Report 8471513-0 (Version None)
Quarter: 2012Q2

REPORT INFORMATION
  Report Type: 
  Country: None (occurrence: None)
  Receive Date: 20120627
  Receipt Date: 20120622
  Transmission Date: 20120825
  Serious: Yes (Other)
  Sender: FDA-Public Use
  Company Number: PHHY2012CO054485

PATIENT
  Sex: Female

DRUGS (2)
  1. ZOLEDRONOC ACID [Suspect]
     Dosage: 5 MG/100 ML SOLUTION FOR INFUSION
     Route: 042
     Dates: start: 20110328
  2. ZOLEDRONOC ACID [Suspect]
     Indication: OSTEOPOROSIS
     Dosage: 5 MG/100 ML SOLUTION FOR INFUSION
     Route: 042
     Dates: start: 20100129

REACTIONS (4)
  - CONCOMITANT DISEASE PROGRESSION [None]
  - BLOOD URINE PRESENT [None]
  - URINARY TRACT INFECTION [None]
  - URINE ODOUR ABNORMAL [None]
